FAERS Safety Report 20445958 (Version 2)
Quarter: 2022Q3

REPORT INFORMATION
  Report Type: Report from Study
  Country: EG (occurrence: EG)
  Receive Date: 20220208
  Receipt Date: 20220816
  Transmission Date: 20221027
  Serious: Yes (Other)
  Sender: FDA-Public Use
  Company Number: EG-NOVARTISPH-NVSC2022EG025163

PATIENT
  Age: 38 Year
  Sex: Female

DRUGS (11)
  1. KISQALI [Suspect]
     Active Substance: RIBOCICLIB
     Indication: Breast cancer metastatic
     Dosage: UNK, (3 TABLETS PER DAY AT ONCE FOR 3 WEEKS THEN ONE WEEK OFF)
     Route: 048
     Dates: start: 20200627
  2. KISQALI [Suspect]
     Active Substance: RIBOCICLIB
     Indication: Metastases to lung
  3. FEMARA [Concomitant]
     Active Substance: LETROZOLE
     Indication: Breast cancer metastatic
     Dosage: 1 DOSAGE FORM, QD (1 TABLET PER DAY)
     Route: 065
     Dates: start: 20200625
  4. FEMARA [Concomitant]
     Active Substance: LETROZOLE
     Indication: Metastases to lung
  5. ZOLADEX [Concomitant]
     Active Substance: GOSERELIN ACETATE
     Indication: Breast cancer metastatic
     Dosage: UNK, INJECTION EVERY 28 DAYS
     Route: 065
     Dates: start: 20200625
  6. ZOLADEX [Concomitant]
     Active Substance: GOSERELIN ACETATE
     Indication: Metastases to lung
  7. CEFTRIAXONE [Concomitant]
     Active Substance: CEFTRIAXONE
     Indication: COVID-19
     Dosage: UNK, 2GM PER DAY FOR 4 DAYS (AS TOTAL SHE TOOK 8 INJECTIONS)
     Route: 065
     Dates: start: 20220710, end: 20220717
  8. ZITHROMAX [Concomitant]
     Active Substance: AZITHROMYCIN DIHYDRATE
     Indication: COVID-19
     Dosage: UNK, TABLET EVERY 12 HOUR FOR 5 DAYS
     Route: 065
     Dates: start: 20220710, end: 20220717
  9. HALOPERIDOL [Concomitant]
     Active Substance: HALOPERIDOL
     Indication: COVID-19
     Dosage: UNK, 3 TO 4 TABLETS PER DAY
     Route: 065
     Dates: start: 20220710, end: 20220717
  10. DEXAMETHASONE [Concomitant]
     Active Substance: DEXAMETHASONE
     Indication: White blood cell count decreased
     Dosage: UNK, HALF AMPOULE FOR 3 DAYS
     Route: 065
     Dates: start: 20220720, end: 20220723
  11. NEUPOGEN [Concomitant]
     Active Substance: FILGRASTIM
     Indication: Product used for unknown indication
     Dosage: UNK
     Route: 065

REACTIONS (8)
  - Optic neuritis [Not Recovered/Not Resolved]
  - Demyelination [Not Recovered/Not Resolved]
  - Visual impairment [Not Recovered/Not Resolved]
  - Infection [Recovering/Resolving]
  - Immunodeficiency [Unknown]
  - Fatigue [Recovering/Resolving]
  - White blood cell count decreased [Unknown]
  - COVID-19 [Unknown]

NARRATIVE: CASE EVENT DATE: 20220710
